FAERS Safety Report 5324252-9 (Version None)
Quarter: 2007Q2

REPORT INFORMATION
  Report Type: 
  Country: None (occurrence: None)
  Receive Date: 20070508
  Receipt Date: 20070423
  Transmission Date: 20071010
  Serious: Yes (Hospitalization)
  Sender: FDA-Public Use
  Company Number: T200700068

PATIENT
  Age: 56 Year
  Sex: Female
  Weight: 68 kg

DRUGS (4)
  1. MIXED AMPHETAMINE SALTS(DEXTROAMPHETAMINE SACCHARATE, AMPHETAMINE ASPA [Suspect]
     Indication: ATTENTION DEFICIT/HYPERACTIVITY DISORDER
     Dosage: 20 MG, QD, ORAL
     Route: 048
     Dates: start: 20061216
  2. DEXTROAMPHETAMINE SULFATE EXTENDED RELEASE (DEXTROAMPHETAMINE SULFATE) [Concomitant]
  3. CLONAZEPAM [Concomitant]
  4. CHLORDIAZEPOXIDE (CHLORDIAZEPOXIDE) CAPSULE [Concomitant]

REACTIONS (19)
  - AGITATION [None]
  - ANXIETY [None]
  - BACTERIAL INFECTION [None]
  - BLOOD CHLORIDE DECREASED [None]
  - BLOOD GLUCOSE DECREASED [None]
  - BLOOD PRESSURE DECREASED [None]
  - BLOOD URINE [None]
  - BODY TEMPERATURE INCREASED [None]
  - CHEST X-RAY ABNORMAL [None]
  - CULTURE URINE POSITIVE [None]
  - DELUSION [None]
  - DISORIENTATION [None]
  - DRUG SCREEN POSITIVE [None]
  - ESCHERICHIA URINARY TRACT INFECTION [None]
  - LETHARGY [None]
  - MALAISE [None]
  - NITRITE URINE PRESENT [None]
  - PLATELET COUNT DECREASED [None]
  - PROTEIN URINE [None]
